FAERS Safety Report 15069318 (Version 1)
Quarter: 2018Q2

REPORT INFORMATION
  Report Type: Spontaneous
  Country: US (occurrence: US)
  Receive Date: 20180626
  Receipt Date: 20180626
  Transmission Date: 20180711
  Serious: No
  Sender: FDA-Public Use
  Company Number: US-AMGEN-USASP2017122766

PATIENT
  Age: 23 Year
  Sex: Male

DRUGS (8)
  1. NEULASTA [Suspect]
     Active Substance: PEGFILGRASTIM
     Indication: PROPHYLAXIS
     Dosage: UNK
     Route: 065
  2. CISPLATIN. [Concomitant]
     Active Substance: CISPLATIN
     Indication: METASTASES TO LUNG
  3. BLEOMYCIN [Concomitant]
     Active Substance: BLEOMYCIN SULFATE
     Indication: TESTIS CANCER
     Dosage: UNK
  4. BLEOMYCIN [Concomitant]
     Active Substance: BLEOMYCIN SULFATE
     Indication: METASTASES TO LUNG
  5. NEULASTA [Suspect]
     Active Substance: PEGFILGRASTIM
     Dosage: UNK
     Route: 065
  6. ETOPOSIDE. [Concomitant]
     Active Substance: ETOPOSIDE
     Indication: METASTASES TO LUNG
  7. CISPLATIN. [Concomitant]
     Active Substance: CISPLATIN
     Indication: TESTIS CANCER
     Dosage: UNK
  8. ETOPOSIDE. [Concomitant]
     Active Substance: ETOPOSIDE
     Indication: TESTIS CANCER
     Dosage: UNK

REACTIONS (1)
  - Inappropriate schedule of drug administration [Unknown]

NARRATIVE: CASE EVENT DATE: 20170804
